FAERS Safety Report 9500082 (Version 10)
Quarter: 2014Q1

REPORT INFORMATION
  Report Type: Spontaneous
  Country: GB (occurrence: GB)
  Receive Date: 20130905
  Receipt Date: 20140326
  Transmission Date: 20141002
  Serious: Yes (Other)
  Sender: FDA-Public Use
  Company Number: PHFR2013GB004521

PATIENT
  Age: 23 Year
  Sex: Male

DRUGS (6)
  1. CLOZARIL [Suspect]
     Indication: SCHIZOPHRENIA
     Dosage: 225 MG, QD
     Route: 048
     Dates: start: 20130712
  2. CLOZARIL [Suspect]
     Dosage: 250 MG, UNK
     Route: 048
     Dates: start: 20130730
  3. AMOXICILLIN [Suspect]
     Indication: INFECTION
     Dosage: 500 MG
     Route: 048
     Dates: start: 20130724, end: 20130730
  4. PARACETAMOL [Concomitant]
     Dosage: UNK
  5. LACTULOSE [Concomitant]
     Dosage: 15 ML, BID AS NECESSARY
  6. LACTULOSE [Concomitant]
     Dosage: AS NECESSARY

REACTIONS (9)
  - C-reactive protein increased [Recovered/Resolved]
  - Liver function test abnormal [Recovering/Resolving]
  - Alanine aminotransferase increased [Recovered/Resolved with Sequelae]
  - Blood albumin increased [Recovered/Resolved]
  - Influenza like illness [Recovered/Resolved]
  - Differential white blood cell count abnormal [Unknown]
  - Eosinophil count increased [Recovered/Resolved]
  - Blood glucose increased [Unknown]
  - Sinus tachycardia [Unknown]
